FAERS Safety Report 5560392-7 (Version None)
Quarter: 2007Q4

REPORT INFORMATION
  Report Type: 
  Country: None (occurrence: None)
  Receive Date: 20071214
  Receipt Date: 20071107
  Transmission Date: 20080405
  Serious: No
  Sender: FDA-Public Use
  Company Number: US-ABBOTT-07P-163-0423661-00

PATIENT
  Sex: Female
  Weight: 59.02 kg

DRUGS (13)
  1. HUMIRA [Suspect]
     Indication: RHEUMATOID ARTHRITIS
     Route: 058
     Dates: start: 20070618, end: 20071001
  2. METHOTREXATE [Concomitant]
     Indication: ARTHRITIS
     Route: 048
  3. ATENOLOL [Concomitant]
     Indication: HEART RATE IRREGULAR
     Route: 048
  4. ESTROGENS CONJUGATED [Concomitant]
     Indication: HOT FLUSH
     Route: 048
  5. DIGOXIN [Concomitant]
     Indication: DRUG USE FOR UNKNOWN INDICATION
     Route: 048
  6. FENOFIBRATE [Concomitant]
     Indication: DRUG USE FOR UNKNOWN INDICATION
     Route: 048
  7. FOLIC ACID [Concomitant]
     Indication: DRUG USE FOR UNKNOWN INDICATION
     Route: 048
  8. MULTIVITAMIN SUPPLEMENT [Concomitant]
     Indication: DRUG USE FOR UNKNOWN INDICATION
     Route: 048
  9. ACUVITE [Concomitant]
     Indication: MACULAR DEGENERATION
     Route: 048
  10. GINKO BILOBA SUPPLEMENT [Concomitant]
     Indication: DRUG USE FOR UNKNOWN INDICATION
     Route: 048
  11. FISH OIL [Concomitant]
     Indication: DRUG USE FOR UNKNOWN INDICATION
     Route: 048
  12. BILIBERI [Concomitant]
     Indication: MACULAR DEGENERATION
     Route: 048
  13. FLUOXETINE HYDROCHLORIDE [Concomitant]
     Indication: DRUG USE FOR UNKNOWN INDICATION
     Route: 048

REACTIONS (7)
  - DRUG INEFFECTIVE [None]
  - FATIGUE [None]
  - INJECTION SITE INDURATION [None]
  - INJECTION SITE NODULE [None]
  - INJECTION SITE PAIN [None]
  - INJECTION SITE PRURITUS [None]
  - OEDEMA PERIPHERAL [None]
